FAERS Safety Report 8075044-1 (Version None)
Quarter: 2012Q1

REPORT INFORMATION
  Report Type: 
  Country: None (occurrence: None)
  Receive Date: 20120127
  Receipt Date: 20120118
  Transmission Date: 20120608
  Serious: No
  Sender: FDA-Public Use
  Company Number: US-BIOGENIDEC-2012BI002287

PATIENT
  Sex: Female

DRUGS (2)
  1. TYSABRI [Suspect]
     Indication: MULTIPLE SCLEROSIS
     Route: 042
     Dates: start: 20100712
  2. AVONEX [Concomitant]
     Indication: MULTIPLE SCLEROSIS
     Route: 030

REACTIONS (11)
  - CENTRAL NERVOUS SYSTEM LESION [None]
  - PYREXIA [None]
  - CYSTITIS [None]
  - DRY MOUTH [None]
  - DIARRHOEA [None]
  - FATIGUE [None]
  - DEHYDRATION [None]
  - FUNGAL INFECTION [None]
  - EAR DISORDER [None]
  - DIVERTICULITIS [None]
  - MULTIPLE SCLEROSIS RELAPSE [None]
